FAERS Safety Report 9800202 (Version 1)
Quarter: 2014Q1

REPORT INFORMATION
  Report Type: Spontaneous
  Country: US (occurrence: US)
  Receive Date: 20140106
  Receipt Date: 20140106
  Transmission Date: 20141002
  Serious: No
  Sender: FDA-Public Use
  Company Number: US-TEVA-453131USA

PATIENT
  Sex: Female

DRUGS (1)
  1. QNASL [Suspect]
     Route: 045

REACTIONS (2)
  - Nasal discomfort [Recovered/Resolved]
  - Headache [Recovered/Resolved]
